FAERS Safety Report 10009353 (Version 2)
Quarter: 2014Q1

REPORT INFORMATION
  Report Type: Spontaneous
  Country: US (occurrence: US)
  Receive Date: 20140313
  Receipt Date: 20140313
  Transmission Date: 20141002
  Serious: Yes (Other)
  Sender: FDA-Public Use
  Company Number: US-INCYTE CORPORATION-2012IN000856

PATIENT
  Sex: Male
  Weight: 67.12 kg

DRUGS (11)
  1. JAKAFI [Suspect]
     Dosage: 15 MG, BID
     Route: 048
     Dates: start: 20120117, end: 20120430
  2. JAKAFI [Suspect]
     Dosage: 20 MG, BID
     Route: 048
     Dates: start: 201205, end: 2012
  3. JAKAFI [Suspect]
     Dosage: 15 MG, BID
     Dates: start: 20120806
  4. KLOR-CON [Concomitant]
  5. CARVEDILOL [Concomitant]
  6. RAMIPRIL [Concomitant]
  7. IMDUR [Concomitant]
  8. TRAMADOL [Concomitant]
     Dosage: 50 MG, PRN
  9. AMBIEN [Concomitant]
     Dosage: 30 MG, PRN
  10. LASIX [Concomitant]
     Dosage: 10 MG, UNK
  11. ARANESP [Concomitant]
     Dosage: 30 MG, UNK

REACTIONS (3)
  - Haemoglobin decreased [Unknown]
  - Diarrhoea [Unknown]
  - Red blood cell count decreased [Unknown]
